FAERS Safety Report 9103441 (Version 2)
Quarter: 2013Q2

REPORT INFORMATION
  Report Type: Spontaneous
  Country: US (occurrence: US)
  Receive Date: 20130219
  Receipt Date: 20130430
  Transmission Date: 20140414
  Serious: Yes (Other)
  Sender: FDA-Public Use
  Company Number: US-GLAXOSMITHKLINE-A1011872A

PATIENT
  Age: 74 Year
  Sex: Female

DRUGS (11)
  1. VOTRIENT [Suspect]
     Indication: RENAL CELL CARCINOMA
     Dosage: 800MG AT NIGHT
     Route: 048
     Dates: start: 20130130, end: 20130206
  2. LISINOPRIL [Concomitant]
  3. SIMVASTATIN [Concomitant]
  4. TRAMADOL [Concomitant]
  5. MVI [Concomitant]
  6. OXYGEN [Concomitant]
  7. MORPHINE [Concomitant]
  8. FISH OIL [Concomitant]
  9. COPPER [Concomitant]
  10. PRESERVISION [Concomitant]
  11. LUTEIN [Concomitant]

REACTIONS (21)
  - Hypoxia [Not Recovered/Not Resolved]
  - Kidney infection [Unknown]
  - Haematochezia [Unknown]
  - Blood pressure increased [Not Recovered/Not Resolved]
  - Decreased appetite [Not Recovered/Not Resolved]
  - Asthenia [Not Recovered/Not Resolved]
  - Rash erythematous [Not Recovered/Not Resolved]
  - Visual impairment [Not Recovered/Not Resolved]
  - Dry skin [Not Recovered/Not Resolved]
  - Pain [Not Recovered/Not Resolved]
  - Dyspnoea [Not Recovered/Not Resolved]
  - Gait disturbance [Not Recovered/Not Resolved]
  - Exfoliative rash [Unknown]
  - Hunger [Unknown]
  - Rash pruritic [Unknown]
  - Vomiting [Not Recovered/Not Resolved]
  - Eructation [Not Recovered/Not Resolved]
  - Paraesthesia [Not Recovered/Not Resolved]
  - Urethritis noninfective [Not Recovered/Not Resolved]
  - Dysgeusia [Unknown]
  - Blood urine present [Unknown]
